FAERS Safety Report 16927105 (Version 1)
Quarter: 2019Q4

REPORT INFORMATION
  Report Type: Spontaneous
  Country: CA (occurrence: CA)
  Receive Date: 20191016
  Receipt Date: 20191016
  Transmission Date: 20200122
  Serious: Yes (Other)
  Sender: FDA-Public Use
  Company Number: CA-TEVA-2019-CA-1122016

PATIENT
  Age: 60 Year
  Sex: Male

DRUGS (5)
  1. COUMADIN [Concomitant]
     Active Substance: WARFARIN SODIUM
  2. SILDENAFIL. [Suspect]
     Active Substance: SILDENAFIL
     Indication: ANOMALOUS PULMONARY VENOUS CONNECTION
  3. TRACLEER [Concomitant]
     Active Substance: BOSENTAN
  4. SILDENAFIL. [Suspect]
     Active Substance: SILDENAFIL
     Indication: RIGHT-TO-LEFT CARDIAC SHUNT
     Dosage: 600 MILLIGRAM DAILY;
     Route: 048
  5. SILDENAFIL. [Suspect]
     Active Substance: SILDENAFIL
     Indication: PULMONARY HYPERTENSION
     Dosage: 225 MILLIGRAM DAILY;
     Route: 048

REACTIONS (9)
  - Hepatic congestion [Not Recovered/Not Resolved]
  - Therapeutic response unexpected [Not Recovered/Not Resolved]
  - Hepatic function abnormal [Not Recovered/Not Resolved]
  - Pre-existing condition improved [Not Recovered/Not Resolved]
  - Walking distance test abnormal [Not Recovered/Not Resolved]
  - Prescribed overdose [Not Recovered/Not Resolved]
  - Drug ineffective for unapproved indication [Not Recovered/Not Resolved]
  - Fluid retention [Not Recovered/Not Resolved]
  - Product use in unapproved indication [Not Recovered/Not Resolved]
